FAERS Safety Report 5555920-1 (Version None)
Quarter: 2007Q4

REPORT INFORMATION
  Report Type: 
  Country: None (occurrence: None)
  Receive Date: 20071213
  Receipt Date: 20071120
  Transmission Date: 20080405
  Serious: No
  Sender: FDA-Public Use
  Company Number: US-BOEHRINGER INGELHEIM PHARMACEUTICALS, INC.-2007-BP-22820BP

PATIENT
  Sex: Male

DRUGS (6)
  1. COMBIVENT [Suspect]
     Indication: CHRONIC OBSTRUCTIVE PULMONARY DISEASE
     Route: 055
     Dates: start: 20000101
  2. ANTIVERT [Concomitant]
     Indication: DIZZINESS
  3. PANMIST LA [Concomitant]
     Indication: SINUS DISORDER
     Dates: start: 20070710
  4. XANAX [Concomitant]
     Dates: start: 20010626
  5. DUONEB [Concomitant]
  6. CIPRO [Concomitant]
     Dates: start: 20070815

REACTIONS (1)
  - DRUG INEFFECTIVE [None]
